FAERS Safety Report 6128210-6 (Version None)
Quarter: 2009Q1

REPORT INFORMATION
  Report Type: 
  Country: None (occurrence: None)
  Receive Date: 20090319
  Receipt Date: 20090306
  Transmission Date: 20090719
  Serious: Yes (Death, Hospitalization)
  Sender: FDA-Public Use
  Company Number: 2008002968

PATIENT
  Age: 59 Year
  Sex: Male

DRUGS (12)
  1. ERLOTINIB (ERLOTINIB) (TABLET) (ERLOTINIB) [Suspect]
     Indication: LUNG ADENOCARCINOMA
     Dosage: 150 MG, QD, ORAL; 100 MG, QD, ORAL
     Route: 048
     Dates: start: 20080728, end: 20080810
  2. ERLOTINIB (ERLOTINIB) (TABLET) (ERLOTINIB) [Suspect]
     Indication: LUNG ADENOCARCINOMA
     Dosage: 150 MG, QD, ORAL; 100 MG, QD, ORAL
     Route: 048
     Dates: start: 20080806, end: 20080810
  3. NAIXAN (NAPROXEN SODIUM) [Concomitant]
  4. OPALMON (LIMAPROST) [Concomitant]
  5. LOXOPROFEN (LOXOPROFEN) [Concomitant]
  6. MAGMITT [Concomitant]
  7. GASTRER (FAMOTIDINE) [Concomitant]
  8. GABAPEN [Concomitant]
  9. OXYCONTIN [Concomitant]
  10. ADONA (CARBAZOCHROME SODIUM SULFONATE) [Concomitant]
  11. TRANSAMIN (TRANEXAMIC ACID) [Concomitant]
  12. SUCROSE (SUCROSE) [Concomitant]

REACTIONS (4)
  - CHEILITIS [None]
  - LUNG ADENOCARCINOMA [None]
  - MALIGNANT NEOPLASM PROGRESSION [None]
  - PNEUMOTHORAX [None]
